FAERS Safety Report 9838269 (Version 1)
Quarter: 2014Q1

REPORT INFORMATION
  Report Type: Spontaneous
  Country: NO (occurrence: NO)
  Receive Date: 20140123
  Receipt Date: 20140123
  Transmission Date: 20141002
  Serious: Yes (Other)
  Sender: FDA-Public Use
  Company Number: NO-ACTAVIS-2014-00343

PATIENT
  Age: 28 Year
  Sex: Male

DRUGS (3)
  1. METRONIDAZOLE (UNKNOWN) [Suspect]
     Indication: ANTIBIOTIC PROPHYLAXIS
     Dosage: 1.5 G, UNK (BEFORE SURGERY)
     Route: 042
     Dates: start: 20131216, end: 20131216
  2. DOXYCYCLINE MONOHYDRATE (UNKNOWN) [Suspect]
     Indication: ANTIBIOTIC PROPHYLAXIS
     Dosage: 200 MG, UNK (BEFORE SURGERY)
     Route: 042
     Dates: start: 20131216, end: 20131216
  3. GENTAMICIN B BRAUN [Suspect]
     Indication: ANTIBIOTIC PROPHYLAXIS
     Dosage: 360 MG, UNK (BEFORE SURGERY)
     Route: 042
     Dates: start: 20131216, end: 20131216

REACTIONS (3)
  - Anaphylactic reaction [Recovered/Resolved]
  - Erythema [Recovered/Resolved]
  - Blood pressure decreased [Recovered/Resolved]
